FAERS Safety Report 15417775 (Version 1)
Quarter: 2018Q3

REPORT INFORMATION
  Report Type: Spontaneous
  Country: HR (occurrence: HR)
  Receive Date: 20180924
  Receipt Date: 20180924
  Transmission Date: 20181010
  Serious: Yes (Disabling)
  Sender: FDA-Public Use
  Company Number: HR-EMD SERONO-9044063

PATIENT
  Age: 70 Year
  Sex: Male
  Weight: 78 kg

DRUGS (1)
  1. AVELUMAB [Suspect]
     Active Substance: AVELUMAB
     Indication: NEUROENDOCRINE CARCINOMA OF THE SKIN
     Route: 042
     Dates: start: 20180515, end: 20180710

REACTIONS (1)
  - Ophthalmoplegia [Not Recovered/Not Resolved]

NARRATIVE: CASE EVENT DATE: 20180710
